FAERS Safety Report 23756570 (Version 2)
Quarter: 2024Q2

REPORT INFORMATION
  Report Type: Spontaneous
  Country: US (occurrence: US)
  Receive Date: 20240418
  Receipt Date: 20240425
  Transmission Date: 20240716
  Serious: Yes (Other)
  Sender: FDA-Public Use
  Company Number: US-Merz Pharmaceuticals GmbH-24-01301

PATIENT
  Sex: Male

DRUGS (1)
  1. XEOMIN [Suspect]
     Active Substance: INCOBOTULINUMTOXINA
     Indication: Product used for unknown indication
     Dates: start: 20240216, end: 20240216

REACTIONS (3)
  - Facial paralysis [Unknown]
  - Nerve injury [Unknown]
  - Adverse event [Unknown]

NARRATIVE: CASE EVENT DATE: 20240101
